FAERS Safety Report 24856385 (Version 2)
Quarter: 2025Q3

REPORT INFORMATION
  Report Type: Report from Study
  Country: US (occurrence: US)
  Receive Date: 20250117
  Receipt Date: 20250802
  Transmission Date: 20251020
  Serious: Yes (Other)
  Sender: ALEXION PHARMACEUTICALS
  Company Number: US-AstraZeneca-CH-00786172A

PATIENT
  Sex: Male

DRUGS (1)
  1. ACALABRUTINIB [Suspect]
     Active Substance: ACALABRUTINIB
     Indication: Chronic lymphocytic leukaemia
     Dosage: 100 MILLIGRAM, BID
     Dates: start: 20241210

REACTIONS (6)
  - Dementia [Unknown]
  - Malaise [Unknown]
  - Dehydration [Unknown]
  - Platelet count decreased [Unknown]
  - Urinary tract infection [Unknown]
  - Fatigue [Unknown]
